FAERS Safety Report 12634962 (Version 2)
Quarter: 2016Q4

REPORT INFORMATION
  Report Type: Spontaneous
  Country: US (occurrence: US)
  Receive Date: 20160808
  Receipt Date: 20161020
  Transmission Date: 20170207
  Serious: No
  Sender: FDA-Public Use
  Company Number: US-009507513-1607USA010392

PATIENT
  Age: 22 Year
  Sex: Female
  Weight: 80.27 kg

DRUGS (1)
  1. NEXPLANON [Suspect]
     Active Substance: ETONOGESTREL
     Indication: CONTRACEPTION
     Dosage: 1 ROD PER 3 YEARS
     Route: 059
     Dates: start: 20140530, end: 20160818

REACTIONS (3)
  - Vaginal haemorrhage [Recovered/Resolved]
  - Weight increased [Unknown]
  - Dysmenorrhoea [Recovered/Resolved]

NARRATIVE: CASE EVENT DATE: 20160510
